FAERS Safety Report 14297072 (Version 1)
Quarter: 2017Q4

REPORT INFORMATION
  Report Type: Spontaneous
  Country: FR (occurrence: FR)
  Receive Date: 20171218
  Receipt Date: 20171218
  Transmission Date: 20180321
  Serious: Yes (Hospitalization, Other)
  Sender: FDA-Public Use
  Company Number: PHHY2017FR187266

PATIENT
  Sex: Male

DRUGS (16)
  1. CYTARABINE. [Suspect]
     Active Substance: CYTARABINE
     Dosage: 30 MG, QD
     Route: 037
     Dates: start: 20170821, end: 20170821
  2. PEGASPARGASE [Suspect]
     Active Substance: PEGASPARGASE
     Dosage: 1875 IU, QD
     Route: 042
     Dates: start: 20170814, end: 20170814
  3. DOXORUBICIN [Suspect]
     Active Substance: DOXORUBICIN
     Indication: ACUTE LYMPHOCYTIC LEUKAEMIA
     Route: 065
  4. METHOTREXATE. [Suspect]
     Active Substance: METHOTREXATE
     Indication: ACUTE LYMPHOCYTIC LEUKAEMIA
     Dosage: 12 MG, UNK
     Route: 037
     Dates: start: 20170706, end: 20170821
  5. ADRIAMYCIN [Suspect]
     Active Substance: DOXORUBICIN HYDROCHLORIDE
     Indication: ACUTE LYMPHOCYTIC LEUKAEMIA
     Dosage: 18.4 MG, UNK
     Route: 042
     Dates: start: 20170703, end: 20170717
  6. PEGASPARGASE [Suspect]
     Active Substance: PEGASPARGASE
     Dosage: 3750 IU, QD
     Route: 048
     Dates: start: 20170723
  7. DEXAMETHASONE. [Suspect]
     Active Substance: DEXAMETHASONE
     Indication: ACUTE LYMPHOCYTIC LEUKAEMIA
     Dosage: 8 MG, QD
     Route: 048
     Dates: start: 20170703, end: 20170723
  8. THIOGUANINE [Suspect]
     Active Substance: THIOGUANINE
     Indication: ACUTE LYMPHOCYTIC LEUKAEMIA
     Dosage: 40 MG, UNK
     Route: 048
     Dates: start: 20170731, end: 20170813
  9. HYDROCORTISONE. [Suspect]
     Active Substance: HYDROCORTISONE
     Indication: ACUTE LYMPHOCYTIC LEUKAEMIA
     Dosage: 15 MG, UNK
     Route: 037
     Dates: start: 20170706, end: 20170821
  10. VINCRISTINE [Suspect]
     Active Substance: VINCRISTINE
     Indication: ACUTE LYMPHOCYTIC LEUKAEMIA
     Dosage: 1.1 MG, QD
     Route: 042
     Dates: start: 20170703, end: 20170821
  11. CYTARABINE. [Suspect]
     Active Substance: CYTARABINE
     Dosage: 55 MG, QD
     Route: 042
     Dates: start: 20170812
  12. CYTARABINE. [Suspect]
     Active Substance: CYTARABINE
     Dosage: 55 MG, QD
     Route: 042
     Dates: start: 20170802
  13. CYCLOPHOSPHAMIDE. [Suspect]
     Active Substance: CYCLOPHOSPHAMIDE
     Indication: ACUTE LYMPHOCYTIC LEUKAEMIA
     Dosage: 740 MG, UNK
     Route: 042
     Dates: start: 20170731, end: 20170731
  14. CYTARABINE. [Suspect]
     Active Substance: CYTARABINE
     Indication: ACUTE LYMPHOCYTIC LEUKAEMIA
     Dosage: 30 MG, QD
     Route: 037
     Dates: start: 20170706
  15. PEGASPARGASE [Suspect]
     Active Substance: PEGASPARGASE
     Indication: ACUTE LYMPHOCYTIC LEUKAEMIA
     Dosage: 3750 IU, QD
     Route: 048
     Dates: start: 20170703
  16. PEGASPARGASE [Suspect]
     Active Substance: PEGASPARGASE
     Dosage: 1875 IU, QD
     Route: 042
     Dates: start: 20170706

REACTIONS (3)
  - Sinusitis [Recovering/Resolving]
  - Optic nerve disorder [Recovering/Resolving]
  - Periorbital infection [Recovering/Resolving]

NARRATIVE: CASE EVENT DATE: 20170830
